FAERS Safety Report 9144110 (Version 1)
Quarter: 2013Q1

REPORT INFORMATION
  Report Type: Spontaneous
  Country: VE (occurrence: VE)
  Receive Date: 20130306
  Receipt Date: 20130306
  Transmission Date: 20140127
  Serious: Yes (Disabling, Other)
  Sender: FDA-Public Use
  Company Number: VE-PFIZER INC-2013077856

PATIENT
  Age: 48 Year
  Sex: Female

DRUGS (1)
  1. LYRICA [Suspect]
     Dosage: 75 MG, 2X/DAY

REACTIONS (2)
  - Cerebrovascular accident [Recovered/Resolved]
  - Walking disability [Not Recovered/Not Resolved]
